FAERS Safety Report 8036805-8 (Version None)
Quarter: 2012Q1

REPORT INFORMATION
  Report Type: 
  Country: None (occurrence: None)
  Receive Date: 20120111
  Receipt Date: 20120105
  Transmission Date: 20120608
  Serious: Yes (Hospitalization)
  Sender: FDA-Public Use
  Company Number: GB-SANOFI-AVENTIS-2012SA001170

PATIENT
  Age: 73 Year
  Sex: Male
  Weight: 77.8 kg

DRUGS (6)
  1. ASPIRIN [Concomitant]
     Route: 048
  2. ROSUVASTATIN [Concomitant]
     Route: 048
  3. WARFARIN SODIUM [Concomitant]
     Route: 048
  4. CABAZITAXEL [Suspect]
     Route: 042
     Dates: start: 20111216, end: 20111216
  5. PREDNISONE TAB [Suspect]
     Indication: PROSTATE CANCER
     Dates: start: 20110830
  6. CABAZITAXEL [Suspect]
     Indication: PROSTATE CANCER
     Route: 042
     Dates: start: 20110830, end: 20110830

REACTIONS (2)
  - FAECES DISCOLOURED [None]
  - INTERNATIONAL NORMALISED RATIO INCREASED [None]
